FAERS Safety Report 7730017-0 (Version None)
Quarter: 2011Q3

REPORT INFORMATION
  Report Type: 
  Country: None (occurrence: None)
  Receive Date: 20110901
  Receipt Date: 20110901
  Transmission Date: 20111222
  Serious: Yes (Other)
  Sender: FDA-Public Use
  Company Number: None

PATIENT
  Age: 69 Year
  Sex: Female
  Weight: 51.7101 kg

DRUGS (4)
  1. SEROQUEL [Concomitant]
  2. LEXAPRO [Concomitant]
  3. LAMICTAL [Suspect]
     Indication: BIPOLAR DISORDER
     Dosage: 25MG 1 PERDY INVOLUNTARY MOVEMENTS
     Dates: start: 20110625, end: 20110712
  4. LAMICTAL [Suspect]

REACTIONS (1)
  - DYSKINESIA [None]
